FAERS Safety Report 9609269 (Version 1)
Quarter: 2013Q4

REPORT INFORMATION
  Report Type: Spontaneous
  Country: FR (occurrence: None)
  Receive Date: 20131007
  Receipt Date: 20131007
  Transmission Date: 20140711
  Serious: Yes (Hospitalization)
  Sender: FDA-Public Use
  Company Number: 2013274613

PATIENT
  Age: 89 Year
  Sex: Male

DRUGS (16)
  1. TRIFLUCAN [Suspect]
     Dosage: 1X/DAY
     Route: 048
     Dates: start: 20130712, end: 20130717
  2. FRAGMINE (DALTEPARIN SODIUM) SOLUTION FOR INJECTION [Suspect]
     Indication: THROMBOSIS PROPHYLAXIS
     Dosage: 1X/DAY
     Route: 048
     Dates: start: 20130712, end: 20130717
  3. TIENAM [Suspect]
     Indication: ESCHERICHIA INFECTION
     Dosage: 4X/DAY IV
     Route: 042
     Dates: start: 20130713, end: 20130719
  4. ZYLORIC [Suspect]
     Indication: GOUT
     Dosage: 1X/DAY
     Route: 048
     Dates: end: 20130712
  5. HEMIGOXINE [Suspect]
     Indication: ATRIAL FIBRILLATION
     Dosage: 1X/DAY
     Route: 048
     Dates: end: 20130712
  6. PROSCAR [Suspect]
     Indication: BENIGN PROSTATIC HYPERPLASIA
     Dosage: 1X/DAY
     Route: 048
     Dates: end: 20130712
  7. CEFTRIAXONE [Suspect]
     Indication: URINARY TRACT INFECTION
     Dosage: 1X/DAY
     Route: 042
     Dates: start: 20130707, end: 20130708
  8. AMIKACIN [Suspect]
     Indication: URINARY TRACT INFECTION
     Route: 042
     Dates: start: 20130707, end: 20130708
  9. LASILIX [Suspect]
     Dosage: 1X/DAY
     Route: 048
     Dates: end: 20130712
  10. INEXIUM [Suspect]
     Dosage: 1X/DAY
     Route: 048
     Dates: end: 20130719
  11. PREVISCAN (FLUINDIONE) [Suspect]
     Dosage: 1X/DAY
     Route: 048
     Dates: end: 20130707
  12. KANOKAD [Suspect]
     Route: 042
     Dates: start: 20130707, end: 20130707
  13. LEVOTHYROX (LEVOTHYROXINE SODIUM) [Concomitant]
  14. PERFALGAN [Concomitant]
  15. INVANZ (ERTAPENEM SODIUM) CONCENTRATE FOR SOLUTION FOR INFUSION [Concomitant]
  16. CORDARONE (AMIODARONE HYDROCHLORIDE) [Concomitant]

REACTIONS (2)
  - Leukopenia [None]
  - Anaemia [None]
